FAERS Safety Report 21419067 (Version 4)
Quarter: 2023Q2

REPORT INFORMATION
  Report Type: Report from Study
  Country: US (occurrence: US)
  Receive Date: 20221006
  Receipt Date: 20230621
  Transmission Date: 20230722
  Serious: Yes (Hospitalization, Other)
  Sender: FDA-Public Use
  Company Number: US-TAKEDA-2022TUS071051

PATIENT
  Sex: Male
  Weight: 79 kg

DRUGS (2)
  1. MARIBAVIR [Suspect]
     Active Substance: MARIBAVIR
     Indication: Cytomegalovirus infection
     Dosage: 400 MILLIGRAM, BID
     Route: 065
     Dates: start: 202209
  2. MARIBAVIR [Suspect]
     Active Substance: MARIBAVIR
     Dosage: 400 MILLIGRAM, BID
     Route: 048
     Dates: start: 20230414

REACTIONS (6)
  - Enzyme level increased [Unknown]
  - Antibody test abnormal [Unknown]
  - Transplant rejection [Unknown]
  - Fatigue [Unknown]
  - Headache [Unknown]
  - Dysgeusia [Unknown]
